FAERS Safety Report 8056959 (Version 4)
Quarter: 2014Q1

REPORT INFORMATION
  Report Type: Report from Study
  Country: CA (occurrence: CA)
  Receive Date: 20110727
  Receipt Date: 20140314
  Transmission Date: 20141002
  Serious: Yes (Death, Other)
  Sender: FDA-Public Use
  Company Number: PHHY2010CA53096

PATIENT
  Age: 72 Year
  Sex: Male

DRUGS (4)
  1. ZOMETA [Suspect]
     Indication: PROSTATE CANCER
     Dosage: 4 MG EVERY 4 WEEKS
     Route: 042
     Dates: start: 20100714
  2. ZOMETA [Suspect]
     Dosage: 4 MG, EVERY 6 WEEKS
     Route: 042
  3. PREDNISOLONE [Concomitant]
     Dosage: UNK UKN, UNK
  4. GRAVOL [Concomitant]
     Dosage: UNK UKN, UNK

REACTIONS (10)
  - Death [Fatal]
  - Blood pressure increased [Unknown]
  - Heart rate decreased [Unknown]
  - Hot flush [Recovering/Resolving]
  - Body temperature decreased [Unknown]
  - Arthralgia [Unknown]
  - Blood creatinine increased [Unknown]
  - Back pain [Unknown]
  - Nausea [Unknown]
  - Prostatic specific antigen increased [Unknown]
